FAERS Safety Report 15441638 (Version 1)
Quarter: 2018Q3

REPORT INFORMATION
  Report Type: Spontaneous
  Country: US (occurrence: US)
  Receive Date: 20180928
  Receipt Date: 20180928
  Transmission Date: 20181010
  Serious: No
  Sender: FDA-Public Use
  Company Number: US-AMGEN-USASP2018126566

PATIENT
  Age: 71 Year
  Sex: Female

DRUGS (4)
  1. PROLIA [Suspect]
     Active Substance: DENOSUMAB
     Indication: BONE LOSS
     Dosage: UNK
     Route: 065
     Dates: start: 2016
  2. AROMASIN [Concomitant]
     Active Substance: EXEMESTANE
     Indication: NEOPLASM MALIGNANT
     Dosage: UNK
  3. PROLIA [Suspect]
     Active Substance: DENOSUMAB
     Dosage: UNK
     Route: 065
  4. CMF [Concomitant]
     Indication: NEOPLASM MALIGNANT
     Dosage: UNK

REACTIONS (4)
  - Bone pain [Unknown]
  - Asthenia [Unknown]
  - Musculoskeletal chest pain [Unknown]
  - Dyspnoea [Unknown]

NARRATIVE: CASE EVENT DATE: 2016
